FAERS Safety Report 6784133-0 (Version None)
Quarter: 2010Q2

REPORT INFORMATION
  Report Type: 
  Country: None (occurrence: None)
  Receive Date: 20100617
  Receipt Date: 20100601
  Transmission Date: 20101027
  Serious: Yes (Death)
  Sender: FDA-Public Use
  Company Number: 2010002272

PATIENT
  Age: 80 Year
  Sex: Female

DRUGS (9)
  1. ERLOTINIB (ERLOTINIB) (TABLET) (ERLOTINIB) [Suspect]
     Indication: NON-SMALL CELL LUNG CANCER
     Dosage: 150 MG, ORAL
     Route: 048
     Dates: start: 20100211, end: 20100514
  2. GEMCITABINE [Suspect]
     Indication: NON-SMALL CELL LUNG CANCER
     Dosage: 1960 MG, INTRAVENOUS
     Route: 042
     Dates: start: 20100128, end: 20100515
  3. ENOXAPARIN SODIUM [Concomitant]
  4. SIMVASTATIN [Concomitant]
  5. RISEDRONIC ACID (RISEDRONIC ACID) [Concomitant]
  6. CALCIUM (CALCIUM) [Concomitant]
  7. CENTRUM (CENTRUM) [Concomitant]
  8. LOPERAMIDE (LOPERAMIDE) [Concomitant]
  9. RANITAL (RANITIDINE) [Concomitant]

REACTIONS (5)
  - CLOSTRIDIUM DIFFICILE COLITIS [None]
  - DEHYDRATION [None]
  - DIARRHOEA [None]
  - RENAL FAILURE ACUTE [None]
  - SEPTIC SHOCK [None]
